FAERS Safety Report 6383253-2 (Version None)
Quarter: 2009Q3

REPORT INFORMATION
  Report Type: 
  Country: None (occurrence: None)
  Receive Date: 20090929
  Receipt Date: 20090914
  Transmission Date: 20100115
  Serious: Yes (Other)
  Sender: FDA-Public Use
  Company Number: 001710

PATIENT
  Age: 65 Year
  Sex: Female

DRUGS (5)
  1. LACOSAMIDE [Suspect]
     Dates: start: 20090601
  2. KEPPRA [Concomitant]
  3. LYRICA [Concomitant]
  4. AMBIEN [Concomitant]
  5. SEROQUEL [Concomitant]

REACTIONS (1)
  - THROMBOCYTOPENIA [None]
